FAERS Safety Report 21560138 (Version 1)
Quarter: 2022Q4

REPORT INFORMATION
  Report Type: Spontaneous
  Country: CN (occurrence: CN)
  Receive Date: 20221107
  Receipt Date: 20221107
  Transmission Date: 20230113
  Serious: Yes (Hospitalization, Other)
  Sender: FDA-Public Use
  Company Number: CN-MYLANLABS-2022M1119913

PATIENT
  Age: 70 Year
  Sex: Female
  Weight: 65 kg

DRUGS (2)
  1. LIPITOR [Suspect]
     Active Substance: ATORVASTATIN CALCIUM
     Indication: Transient ischaemic attack
     Dosage: 20 MILLIGRAM, QD
     Route: 048
     Dates: start: 20220825, end: 20220910
  2. LIPITOR [Suspect]
     Active Substance: ATORVASTATIN CALCIUM
     Indication: Cerebrovascular accident

REACTIONS (9)
  - Vomiting [Recovering/Resolving]
  - Liver injury [Recovering/Resolving]
  - Abdominal discomfort [Unknown]
  - Myalgia [Unknown]
  - Muscle fatigue [Unknown]
  - Neck pain [Unknown]
  - Joint swelling [Unknown]
  - Asthenia [Unknown]
  - Alanine aminotransferase increased [Unknown]

NARRATIVE: CASE EVENT DATE: 20220915
